FAERS Safety Report 4483428-3 (Version None)
Quarter: 2004Q4

REPORT INFORMATION
  Report Type: 
  Country: None (occurrence: None)
  Receive Date: 20041020
  Receipt Date: 20041004
  Transmission Date: 20050328
  Serious: Yes (Hospitalization, Other)
  Sender: FDA-Public Use
  Company Number: USA041080124

PATIENT
  Age: 63 Year
  Sex: Female
  Weight: 82 kg

DRUGS (4)
  1. HUMALOG [Suspect]
     Dosage: 20 U/3 DAY
     Dates: start: 20030101
  2. CYCLOSPORINE [Concomitant]
  3. PREDNISONE [Concomitant]
  4. LANTUS [Concomitant]

REACTIONS (16)
  - ABDOMINAL DISTENSION [None]
  - ASTHENIA [None]
  - BLOOD GLUCOSE DECREASED [None]
  - BLOOD GLUCOSE INCREASED [None]
  - CHEST PAIN [None]
  - DIZZINESS [None]
  - DYSPHAGIA [None]
  - FEELING ABNORMAL [None]
  - FLATULENCE [None]
  - LOSS OF CONSCIOUSNESS [None]
  - NAUSEA [None]
  - PHARMACEUTICAL PRODUCT COMPLAINT [None]
  - PROTEIN TOTAL DECREASED [None]
  - RENAL FAILURE [None]
  - TREMOR [None]
  - VISION BLURRED [None]
